FAERS Safety Report 6946036-8 (Version None)
Quarter: 2010Q3

REPORT INFORMATION
  Report Type: 
  Country: None (occurrence: None)
  Receive Date: 20100827
  Receipt Date: 20100819
  Transmission Date: 20110219
  Serious: Yes (Hospitalization)
  Sender: FDA-Public Use
  Company Number: US-AMGEN-KDL432725

PATIENT
  Sex: Female

DRUGS (1)
  1. ENBREL [Suspect]
     Indication: RHEUMATOID ARTHRITIS
     Route: 058
     Dates: start: 20001201, end: 20100601

REACTIONS (9)
  - ARTHRALGIA [None]
  - BRONCHOPULMONARY ASPERGILLOSIS [None]
  - DIARRHOEA [None]
  - JOINT CREPITATION [None]
  - LUNG INFECTION [None]
  - NIGHT SWEATS [None]
  - PAIN IN EXTREMITY [None]
  - PYREXIA [None]
  - RHEUMATOID ARTHRITIS [None]
